FAERS Safety Report 23322164 (Version 1)
Quarter: 2023Q4

REPORT INFORMATION
  Report Type: Spontaneous
  Country: JP (occurrence: JP)
  Receive Date: 20231220
  Receipt Date: 20231220
  Transmission Date: 20240110
  Serious: No
  Sender: FDA-Public Use
  Company Number: JP-WW-2023-JP-173702

PATIENT
  Age: 12 Year
  Weight: 38 kg

DRUGS (1)
  1. DUTASTERIDE [Suspect]
     Active Substance: DUTASTERIDE
     Dosage: 1 DF
     Route: 065
     Dates: start: 20231211

REACTIONS (2)
  - Contraindicated product administered [Unknown]
  - Accidental exposure to product by child [Unknown]
